FAERS Safety Report 5445819-3 (Version None)
Quarter: 2007Q3

REPORT INFORMATION
  Report Type: 
  Country: None (occurrence: None)
  Receive Date: 20070904
  Receipt Date: 20070822
  Transmission Date: 20080115
  Serious: Yes (Hospitalization, Disabling, Other)
  Sender: FDA-Public Use
  Company Number: 062-C5013-07041298

PATIENT
  Age: 66 Year
  Sex: Male

DRUGS (14)
  1. CC-5013 (LENALIDOMIDE) (CAPSULES) [Suspect]
     Indication: MULTIPLE MYELOMA
     Dosage: DAILY, ORAL
     Route: 048
     Dates: start: 20070127, end: 20070424
  2. KATADOLON (FLUPIRTINE MALEATE) (TABLETS) [Suspect]
     Indication: DRUG USE FOR UNKNOWN INDICATION
     Dosage: ORAL
     Route: 048
  3. DUROGESIC PLASTER (FENTANYL) (POULTICE OR PATCH) [Concomitant]
  4. SEVREDO (MORPHINE HYDROCHLORIDE) [Concomitant]
  5. TRANCOPAL DOLO (FLUPIRTINE MALEATE) (100 MILLIGRAM) [Concomitant]
  6. NOVALGIN (METAMIZOLE SODIUM) (40 DOSAGE FORMS) [Concomitant]
  7. NEURONTIN (GABAPENTIN) (300 MILLIGRAM) [Concomitant]
  8. PANTOPRAZOL (PANTOPRAZOLE) [Concomitant]
  9. MACROGOL (MACROGOL) [Concomitant]
  10. PASPERTIN (METOCLOPRAMIDE HYDROCHLORIDE) (30 DOSAGE FORMS) [Concomitant]
  11. SIMETICON (DIMETICONE, ACTIVATED) [Concomitant]
  12. TAVANIC (LEVOFLOXACIN) [Concomitant]
  13. ENOXAPARIN SODIUM [Concomitant]
  14. OXAZEPAM [Concomitant]

REACTIONS (11)
  - ASTERIXIS [None]
  - BLOOD CALCIUM INCREASED [None]
  - C-REACTIVE PROTEIN INCREASED [None]
  - ENCEPHALOPATHY [None]
  - HAEMATOCRIT DECREASED [None]
  - HAEMOGLOBIN DECREASED [None]
  - MUSCLE TWITCHING [None]
  - OVERDOSE [None]
  - PROTEIN TOTAL INCREASED [None]
  - TREMOR [None]
  - WHITE BLOOD CELL COUNT DECREASED [None]
